FAERS Safety Report 8967909 (Version 1)
Quarter: 2012Q4

REPORT INFORMATION
  Report Type: 
  Country: US (occurrence: US)
  Receive Date: 20121218
  Receipt Date: 20121218
  Transmission Date: 20130627
  Serious: No
  Sender: FDA-Public Use
  Company Number: US-GLAXOSMITHKLINE-A0971636A

PATIENT
  Sex: Male

DRUGS (3)
  1. COREG CR [Suspect]
     Indication: HYPERTENSION
     Dosage: 20MG Twice per day
     Route: 048
     Dates: start: 2008
  2. NIFEDIPINE ER [Concomitant]
  3. LISINOPRIL [Concomitant]

REACTIONS (3)
  - Heart rate decreased [Unknown]
  - Nausea [Unknown]
  - Incorrect dose administered [Unknown]
